FAERS Safety Report 22034864 (Version 1)
Quarter: 2023Q1

REPORT INFORMATION
  Report Type: Spontaneous
  Country: SE (occurrence: SE)
  Receive Date: 20230224
  Receipt Date: 20230224
  Transmission Date: 20230417
  Serious: Yes (Other)
  Sender: FDA-Public Use
  Company Number: None

PATIENT
  Age: 85 Year
  Sex: Male

DRUGS (1)
  1. LINAGLIPTIN [Suspect]
     Active Substance: LINAGLIPTIN
     Indication: Product used for unknown indication
     Dosage: 1
     Route: 048
     Dates: start: 20220927, end: 20221227

REACTIONS (4)
  - Pruritus [Unknown]
  - Erythema [Unknown]
  - Rash [Unknown]
  - Skin reaction [Unknown]

NARRATIVE: CASE EVENT DATE: 20221101
